FAERS Safety Report 14931437 (Version 1)
Quarter: 2018Q2

REPORT INFORMATION
  Report Type: Spontaneous
  Country: FR (occurrence: FR)
  Receive Date: 20180524
  Receipt Date: 20180524
  Transmission Date: 20180711
  Serious: Yes (Other)
  Sender: FDA-Public Use
  Company Number: FR-MERCK KGAA-2048377

PATIENT
  Sex: Female

DRUGS (1)
  1. NOVOTHYROX [Suspect]
     Active Substance: LEVOTHYROXINE SODIUM
     Indication: PRODUCT USED FOR UNKNOWN INDICATION

REACTIONS (20)
  - Irritability [Recovered/Resolved]
  - Alopecia [Recovered/Resolved]
  - Gastrointestinal disorder [None]
  - Nervousness [None]
  - Suicidal ideation [None]
  - Social avoidant behaviour [None]
  - Phobia of driving [None]
  - Dizziness [Recovered/Resolved]
  - Somnolence [None]
  - Insomnia [None]
  - Fatigue [None]
  - Joint swelling [None]
  - Conversion disorder [None]
  - Decreased activity [None]
  - Disturbance in social behaviour [Recovered/Resolved]
  - Depression [Recovered/Resolved]
  - Abdominal discomfort [None]
  - Headache [None]
  - Crying [None]
  - Weight increased [None]
